FAERS Safety Report 7690631-8 (Version None)
Quarter: 2011Q3

REPORT INFORMATION
  Report Type: 
  Country: None (occurrence: None)
  Receive Date: 20110817
  Receipt Date: 20110817
  Transmission Date: 20111222
  Serious: No
  Sender: FDA-Public Use
  Company Number: None

PATIENT
  Age: 59 Year
  Sex: Male
  Weight: 128.1 kg

DRUGS (1)
  1. GABAPENTIN [Suspect]
     Dosage: 300 MG TID PO
     Route: 048
     Dates: start: 20101110, end: 20110211

REACTIONS (2)
  - ABNORMAL DREAMS [None]
  - SOMNOLENCE [None]
